FAERS Safety Report 8523731-0 (Version None)
Quarter: 2012Q3

REPORT INFORMATION
  Report Type: 
  Country: None (occurrence: None)
  Receive Date: 20120720
  Receipt Date: 20120716
  Transmission Date: 20120928
  Serious: Yes (Hospitalization)
  Sender: FDA-Public Use
  Company Number: US-TEVA-2011001927

PATIENT
  Sex: Male
  Weight: 105 kg

DRUGS (14)
  1. TREANDA [Suspect]
     Indication: MULTIPLE MYELOMA
     Route: 041
     Dates: start: 20101101
  2. GABAPENTIN [Concomitant]
  3. POTASSIUM CHLORIDE [Concomitant]
  4. FLOMAX [Concomitant]
  5. SENOKOT [Concomitant]
  6. COUMADIN [Concomitant]
     Dates: start: 20101201
  7. HYDROCODONE BITARTRATE + ACETAMINOPHEN [Concomitant]
  8. DEXAMETHASONE [Suspect]
     Indication: MULTIPLE MYELOMA
     Dates: start: 20101101
  9. GLIPIZIDE [Concomitant]
  10. INSULIN [Concomitant]
     Dates: start: 20101230
  11. MIDODRINE HYDROCHLORIDE [Concomitant]
  12. MECLIZINE [Concomitant]
     Dates: start: 20100902
  13. REVLIMID [Suspect]
     Indication: MULTIPLE MYELOMA
     Dates: start: 20101101
  14. ASPIRIN [Concomitant]
     Dates: start: 20101101

REACTIONS (3)
  - CYTOMEGALOVIRUS INFECTION [None]
  - RESPIRATORY DISTRESS [None]
  - PULMONARY OEDEMA [None]
